FAERS Safety Report 17175735 (Version 1)
Quarter: 2019Q4

REPORT INFORMATION
  Report Type: Report from Study
  Country: KR (occurrence: KR)
  Receive Date: 20191219
  Receipt Date: 20191219
  Transmission Date: 20200122
  Serious: Yes (Hospitalization, Other)
  Sender: FDA-Public Use
  Company Number: KR-AMGEN-KORNI2019209729

PATIENT
  Age: 60 Year
  Sex: Female

DRUGS (7)
  1. DOXORUBICIN [Concomitant]
     Active Substance: DOXORUBICIN
     Indication: BREAST CANCER
     Dosage: 94.2 MILLIGRAM, QD (SINGLE)
     Route: 065
     Dates: start: 20191017, end: 20191017
  2. DOXORUBICIN [Concomitant]
     Active Substance: DOXORUBICIN
     Dosage: 94.2 MILLIGRAM, QD (SINGLE)
     Route: 065
     Dates: start: 20191107, end: 20191107
  3. PEGFILGRASTIM [Suspect]
     Active Substance: PEGFILGRASTIM
     Indication: BREAST CANCER
     Dosage: 6 MG 1
     Route: 058
     Dates: start: 20191129, end: 20191129
  4. CYCLOPHOSPHAMIDE. [Concomitant]
     Active Substance: CYCLOPHOSPHAMIDE
     Dosage: 942 MILLIGRAM, QD (SINGLE)
     Route: 065
     Dates: start: 20191107, end: 20191107
  5. DOXORUBICIN [Concomitant]
     Active Substance: DOXORUBICIN
     Dosage: 94.2 MILLIGRAM, QD (SINGLE)
     Route: 065
     Dates: start: 20191128, end: 20191128
  6. CYCLOPHOSPHAMIDE. [Concomitant]
     Active Substance: CYCLOPHOSPHAMIDE
     Dosage: 942 MILLIGRAM, QD (SINGLE)
     Route: 065
     Dates: start: 20191128, end: 20191128
  7. CYCLOPHOSPHAMIDE. [Concomitant]
     Active Substance: CYCLOPHOSPHAMIDE
     Indication: BREAST CANCER
     Dosage: 942 MILLIGRAM, QD (SINGLE)
     Route: 065
     Dates: start: 20191017, end: 20191017

REACTIONS (1)
  - Neutropenia [Recovered/Resolved]

NARRATIVE: CASE EVENT DATE: 20191206
